FAERS Safety Report 11892965 (Version 2)
Quarter: 2016Q1

REPORT INFORMATION
  Report Type: Report from Study
  Country: US (occurrence: US)
  Receive Date: 20160106
  Receipt Date: 20160225
  Transmission Date: 20160526
  Serious: Yes (Other)
  Sender: FDA-Public Use
  Company Number: PHEH2016US000507

PATIENT
  Age: 60 Year
  Sex: Male
  Weight: 89.9 kg

DRUGS (2)
  1. GILENYA [Suspect]
     Active Substance: FINGOLIMOD HYDROCHLORIDE
     Indication: MULTIPLE SCLEROSIS
     Dosage: 0.5 MG, QD
     Route: 048
     Dates: start: 20141216
  2. GILENYA [Suspect]
     Active Substance: FINGOLIMOD HYDROCHLORIDE
     Dosage: 0.5 MG, TIW
     Route: 048
     Dates: start: 20141224

REACTIONS (6)
  - White blood cell count decreased [Unknown]
  - Multiple sclerosis relapse [Unknown]
  - Blood pressure increased [Unknown]
  - Prescribed underdose [Unknown]
  - Heart rate decreased [Not Recovered/Not Resolved]
  - Lymphopenia [Recovering/Resolving]

NARRATIVE: CASE EVENT DATE: 20141216
